FAERS Safety Report 6385168-2 (Version None)
Quarter: 2009Q4

REPORT INFORMATION
  Report Type: 
  Country: None (occurrence: None)
  Receive Date: 20091002
  Receipt Date: 20081113
  Transmission Date: 20100525
  Serious: No
  Sender: FDA-Public Use
  Company Number: US-ASTRAZENECA-2007UW05370

PATIENT
  Age: 52 Year
  Sex: Female
  Weight: 88.5 kg

DRUGS (3)
  1. ARIMIDEX [Suspect]
     Indication: BREAST CANCER STAGE III
     Route: 048
     Dates: start: 20070201
  2. XANAX [Concomitant]
  3. TYLENOL (CAPLET) [Concomitant]

REACTIONS (6)
  - AMNESIA [None]
  - ARTHRALGIA [None]
  - GAIT DISTURBANCE [None]
  - LYMPHOEDEMA [None]
  - MOOD SWINGS [None]
  - NECK PAIN [None]
